FAERS Safety Report 16724915 (Version 1)
Quarter: 2019Q3

REPORT INFORMATION
  Report Type: Spontaneous
  Country: FR (occurrence: FR)
  Receive Date: 20190821
  Receipt Date: 20190821
  Transmission Date: 20191005
  Serious: Yes (Other)
  Sender: FDA-Public Use
  Company Number: FR-MYLANLABS-2019M1077643

PATIENT
  Age: 58 Year
  Sex: Female

DRUGS (4)
  1. LYRICA [Suspect]
     Active Substance: PREGABALIN
     Indication: PAIN
     Dosage: 150 MILLIGRAM, QD
     Route: 048
     Dates: start: 20190228, end: 20190301
  2. KETOPROFEN. [Suspect]
     Active Substance: KETOPROFEN
     Indication: PAIN
     Dosage: 200 MILLIGRAM, QD
     Route: 048
     Dates: start: 20190301, end: 20190301
  3. OROZAMUDOL [Suspect]
     Active Substance: TRAMADOL
     Indication: PAIN
     Dosage: 50 MILLIGRAM, Q4H
     Route: 048
     Dates: start: 20190228, end: 20190301
  4. PARACETAMOL [Suspect]
     Active Substance: ACETAMINOPHEN
     Indication: PAIN
     Dosage: 3 DOSAGE FORM, QD
     Route: 048
     Dates: start: 20190228, end: 20190301

REACTIONS (2)
  - Cholestasis [Recovering/Resolving]
  - Hepatocellular injury [Recovering/Resolving]

NARRATIVE: CASE EVENT DATE: 20190302
